FAERS Safety Report 7593066-1 (Version None)
Quarter: 2011Q3

REPORT INFORMATION
  Report Type: 
  Country: None (occurrence: None)
  Receive Date: 20110706
  Receipt Date: 20110704
  Transmission Date: 20111222
  Serious: Yes (Hospitalization, Disabling)
  Sender: FDA-Public Use
  Company Number: DK-TEVA-229969ISR

PATIENT
  Sex: Male

DRUGS (4)
  1. AZATHIOPRINE [Concomitant]
     Dosage: UNKNOWN
     Route: 065
     Dates: start: 20051027
  2. PREDNISOLONE [Concomitant]
     Indication: SARCOIDOSIS
     Dates: start: 20051027
  3. METHOTREXATE [Suspect]
     Indication: SARCOIDOSIS
     Dosage: UNKNOWN
     Route: 065
     Dates: start: 20051027, end: 20051222
  4. METHOTREXATE [Suspect]
     Route: 065
     Dates: start: 20080118

REACTIONS (2)
  - JC VIRUS INFECTION [None]
  - PROGRESSIVE MULTIFOCAL LEUKOENCEPHALOPATHY [None]
